FAERS Safety Report 8007949-1 (Version None)
Quarter: 2011Q4

REPORT INFORMATION
  Report Type: 
  Country: None (occurrence: None)
  Receive Date: 20111227
  Receipt Date: 20111213
  Transmission Date: 20120403
  Serious: Yes (Hospitalization, Other)
  Sender: FDA-Public Use
  Company Number: US-ELI_LILLY_AND_COMPANY-US201112004635

PATIENT
  Age: 77 Year
  Sex: Female

DRUGS (18)
  1. POTASSIUM CHLORIDE [Concomitant]
  2. VITAMIN C [Concomitant]
  3. VITAMIN B3 [Concomitant]
  4. ATENOLOL [Concomitant]
     Indication: GLAUCOMA
  5. VITAMIN D [Concomitant]
  6. CALCIUM +VIT D [Concomitant]
  7. CELEXA [Concomitant]
  8. LASIX [Concomitant]
  9. SYNTHROID [Concomitant]
     Dosage: 250 MG, QD
  10. CELEBREX [Concomitant]
  11. PLAVIX [Concomitant]
  12. ASPIRIN [Concomitant]
  13. ALDACTONE [Concomitant]
  14. CARDIZEM [Concomitant]
  15. MULTI-VITAMIN [Concomitant]
  16. VITAMIN E                            /001105/ [Concomitant]
  17. FORTEO [Suspect]
     Indication: OSTEOPOROSIS
     Dosage: 20 UG, QD
  18. ENALAPRIL MALEATE [Concomitant]

REACTIONS (5)
  - FALL [None]
  - EXTRASYSTOLES [None]
  - CEREBRAL HAEMORRHAGE [None]
  - CONCUSSION [None]
  - OXYGEN SATURATION DECREASED [None]
